FAERS Safety Report 6902720-3 (Version None)
Quarter: 2010Q3

REPORT INFORMATION
  Report Type: 
  Country: None (occurrence: None)
  Receive Date: 20100803
  Receipt Date: 20080802
  Transmission Date: 20110219
  Serious: No
  Sender: FDA-Public Use
  Company Number: US-PFIZER INC-2008051144

PATIENT
  Sex: Female

DRUGS (8)
  1. LYRICA [Suspect]
     Indication: MUSCLE SPASMS
     Route: 048
     Dates: start: 20080505, end: 20080604
  2. NEXIUM [Concomitant]
  3. SUDAFED 12 HOUR [Concomitant]
  4. VALIUM [Concomitant]
  5. PROMAZINE HYDROCHLORIDE [Concomitant]
  6. MULTI-VITAMINS [Concomitant]
  7. DRUG, UNSPECIFIED [Concomitant]
  8. NAPROSYN [Concomitant]

REACTIONS (2)
  - LYMPHADENOPATHY [None]
  - RASH [None]
